FAERS Safety Report 5920901-2 (Version None)
Quarter: 2008Q4

REPORT INFORMATION
  Report Type: 
  Country: None (occurrence: None)
  Receive Date: 20081015
  Receipt Date: 20081015
  Transmission Date: 20090506
  Serious: Yes (Other)
  Sender: FDA-Public Use
  Company Number: None

PATIENT
  Age: 45 Year
  Sex: Female
  Weight: 97.5234 kg

DRUGS (1)
  1. CHLORAPREP [Suspect]
     Indication: PREOPERATIVE CARE
     Dosage: ONE APPLICATION TOP
     Route: 061
     Dates: start: 20081002, end: 20081002

REACTIONS (4)
  - ITCHING SCAR [None]
  - SCAB [None]
  - SCRATCH [None]
  - SKIN HAEMORRHAGE [None]
